FAERS Safety Report 5320407-8 (Version None)
Quarter: 2007Q2

REPORT INFORMATION
  Report Type: 
  Country: None (occurrence: None)
  Receive Date: 20070509
  Receipt Date: 20070425
  Transmission Date: 20071010
  Serious: Yes (Other)
  Sender: FDA-Public Use
  Company Number: DE-PURDUE-DEU_2007_0003281

PATIENT
  Age: 32 Year
  Sex: Female
  Weight: 60 kg

DRUGS (2)
  1. PALLADON RETARD [Suspect]
     Indication: PAIN
     Dosage: 32 MG, BID
     Route: 048
  2. PALLADON 2,6MG HARTKAPSELN [Suspect]
     Indication: PAIN
     Dosage: 2.6 MG, QID
     Route: 048

REACTIONS (4)
  - AMENORRHOEA [None]
  - OESTRADIOL DECREASED [None]
  - SECONDARY ADRENOCORTICAL INSUFFICIENCY [None]
  - SECONDARY HYPOGONADISM [None]
